FAERS Safety Report 12854577 (Version 2)
Quarter: 2016Q4

REPORT INFORMATION
  Report Type: Spontaneous
  Country: CA (occurrence: CA)
  Receive Date: 20161017
  Receipt Date: 20161220
  Transmission Date: 20170207
  Serious: Yes (Other)
  Sender: FDA-Public Use
  Company Number: CA-SA-2016SA186203

PATIENT
  Weight: 3.14 kg

DRUGS (4)
  1. LOVENOX [Suspect]
     Active Substance: ENOXAPARIN SODIUM
     Route: 064
  2. HEPARIN [Suspect]
     Active Substance: HEPARIN SODIUM
     Dosage: DOSE:500 UNIT(S)
     Route: 064
  3. HEPARIN [Suspect]
     Active Substance: HEPARIN SODIUM
     Dosage: DOSE:500 UNIT(S)
     Route: 064
  4. WARFARIN [Suspect]
     Active Substance: WARFARIN
     Route: 064

REACTIONS (2)
  - Foetal exposure during pregnancy [Unknown]
  - Apgar score low [Unknown]
